FAERS Safety Report 6923063-8 (Version None)
Quarter: 2010Q3

REPORT INFORMATION
  Report Type: 
  Country: None (occurrence: None)
  Receive Date: 20100813
  Receipt Date: 20100805
  Transmission Date: 20110219
  Serious: Yes (Hospitalization)
  Sender: FDA-Public Use
  Company Number: ES-PFIZER INC-2010080005

PATIENT
  Age: 35 Year
  Sex: Male

DRUGS (5)
  1. NORVASC [Suspect]
     Indication: HYPERTENSION
     Dosage: 10 MG, DAILY
     Route: 048
     Dates: start: 20091103, end: 20091110
  2. NORVASC [Suspect]
     Dosage: 15 MG, DAILY
     Route: 048
     Dates: start: 20091110, end: 20091123
  3. ATARAX [Concomitant]
     Indication: RENAL FAILURE CHRONIC
     Dosage: 25 MG, 1X/DAY
     Route: 048
     Dates: start: 20090801
  4. LORAZEPAM [Concomitant]
     Dosage: 1.5 MG DAILY
     Dates: start: 20081101
  5. RENAGEL [Concomitant]
     Dosage: 800 MG, UNK
     Dates: start: 20090801

REACTIONS (1)
  - MYOCLONUS [None]
